FAERS Safety Report 10382642 (Version 1)
Quarter: 2014Q3

REPORT INFORMATION
  Report Type: Spontaneous
  Country: US (occurrence: US)
  Receive Date: 20140813
  Receipt Date: 20140813
  Transmission Date: 20150326
  Serious: No
  Sender: FDA-Public Use
  Company Number: US-SA-2014SA024479

PATIENT
  Sex: Female

DRUGS (3)
  1. MULTAQ [Suspect]
     Active Substance: DRONEDARONE
     Indication: PRODUCT USED FOR UNKNOWN INDICATION
     Route: 065
     Dates: start: 20140221
  2. XARELTO [Concomitant]
     Active Substance: RIVAROXABAN
  3. LOSARTAN [Concomitant]
     Active Substance: LOSARTAN

REACTIONS (5)
  - Blood pressure decreased [Unknown]
  - Heart rate decreased [Unknown]
  - Increased upper airway secretion [Unknown]
  - Nausea [Unknown]
  - Drug dose omission [Unknown]
